FAERS Safety Report 4767766-2 (Version None)
Quarter: 2005Q3

REPORT INFORMATION
  Report Type: 
  Country: None (occurrence: None)
  Receive Date: 20050912
  Receipt Date: 20050831
  Transmission Date: 20060218
  Serious: Yes (Death, Other)
  Sender: FDA-Public Use
  Company Number: 2005122997

PATIENT
  Sex: 0

DRUGS (4)
  1. AZITHROMYCIN [Suspect]
     Indication: PHARYNGEAL OEDEMA
     Dosage: ORAL
     Route: 048
  2. AZITHROMYCIN [Suspect]
     Indication: PYREXIA
     Dosage: ORAL
     Route: 048
  3. SELBEX (TEPRENONE) [Suspect]
     Indication: ILL-DEFINED DISORDER
     Dosage: ORAL
     Route: 048
  4. LYSOZYME HYDROCHLORIDE (LYSOZYME HYDROCHLORIDE) [Suspect]
     Indication: ILL-DEFINED DISORDER

REACTIONS (9)
  - ALANINE AMINOTRANSFERASE INCREASED [None]
  - ASPARTATE AMINOTRANSFERASE INCREASED [None]
  - BLOOD PRESSURE DECREASED [None]
  - DIARRHOEA [None]
  - MULTI-ORGAN FAILURE [None]
  - PHARYNGEAL ERYTHEMA [None]
  - PHARYNGEAL OEDEMA [None]
  - PYREXIA [None]
  - VOMITING [None]
